FAERS Safety Report 5238023-5 (Version None)
Quarter: 2007Q1

REPORT INFORMATION
  Report Type: 
  Country: None (occurrence: None)
  Receive Date: 20070214
  Receipt Date: 20070202
  Transmission Date: 20070707
  Serious: Yes (Hospitalization, Other)
  Sender: FDA-Public Use
  Company Number: US-PFIZER INC-2007010217

PATIENT
  Sex: Female
  Weight: 47.6 kg

DRUGS (4)
  1. LYRICA [Suspect]
     Indication: PAIN
     Route: 048
  2. DARVOCET [Concomitant]
     Indication: PAIN
  3. ATENOLOL [Concomitant]
     Indication: HEART RATE IRREGULAR
  4. PROMETHAZINE [Concomitant]

REACTIONS (2)
  - NAUSEA [None]
  - STOMACH DISCOMFORT [None]
